FAERS Safety Report 8320074-5 (Version None)
Quarter: 2012Q2

REPORT INFORMATION
  Report Type: 
  Country: None (occurrence: None)
  Receive Date: 20120428
  Receipt Date: 20120424
  Transmission Date: 20120825
  Serious: Yes (Other)
  Sender: FDA-Public Use
  Company Number: GB-ACCORD-013262

PATIENT
  Age: 32 Year
  Sex: Female

DRUGS (2)
  1. TRILEPTAL [Concomitant]
  2. LEVETIRACETAM [Suspect]
     Dates: start: 20120420

REACTIONS (3)
  - LOSS OF CONSCIOUSNESS [None]
  - PRODUCT SUBSTITUTION ISSUE [None]
  - GRAND MAL CONVULSION [None]
